FAERS Safety Report 6136755-8 (Version None)
Quarter: 2009Q1

REPORT INFORMATION
  Report Type: 
  Country: None (occurrence: None)
  Receive Date: 20090330
  Receipt Date: 20090316
  Transmission Date: 20090719
  Serious: Yes (Hospitalization, Other)
  Sender: FDA-Public Use
  Company Number: FR-CELGENEUS-056-20785-09020813

PATIENT
  Sex: Male
  Weight: 74.6 kg

DRUGS (1)
  1. THALIDOMIDE [Suspect]
     Indication: PLASMACYTOMA
     Route: 048
     Dates: end: 20090216

REACTIONS (1)
  - HEMIPLEGIA [None]
